FAERS Safety Report 4864619-6 (Version None)
Quarter: 2005Q4

REPORT INFORMATION
  Report Type: 
  Country: None (occurrence: None)
  Receive Date: 20051201
  Receipt Date: 20050711
  Transmission Date: 20060501
  Serious: No
  Sender: FDA-Public Use
  Company Number: 2005PV000449

PATIENT
  Age: 70 Year
  Sex: Male
  Weight: 58.514 kg

DRUGS (10)
  1. BYETTA [Suspect]
     Indication: DIABETES MELLITUS NON-INSULIN-DEPENDENT
     Dosage: SEE IMAGE
     Route: 058
     Dates: start: 20050629, end: 20050726
  2. BYETTA [Suspect]
     Indication: DIABETES MELLITUS NON-INSULIN-DEPENDENT
     Dosage: SEE IMAGE
     Route: 058
     Dates: start: 20050727
  3. AMARYL [Concomitant]
  4. METFORMIN [Concomitant]
  5. ACTOS [Concomitant]
  6. CRESTOR [Concomitant]
  7. LISINOPRIL [Concomitant]
  8. ADVAIR DISKUS 250/50 [Concomitant]
  9. THEOPHYLLINE [Concomitant]
  10. PRILOSEC [Concomitant]

REACTIONS (4)
  - ABDOMINAL PAIN [None]
  - DIARRHOEA [None]
  - FAECES DISCOLOURED [None]
  - FEELING JITTERY [None]
